FAERS Safety Report 5212873-3 (Version None)
Quarter: 2007Q1

REPORT INFORMATION
  Report Type: 
  Country: None (occurrence: None)
  Receive Date: 20070119
  Receipt Date: 20070109
  Transmission Date: 20070707
  Serious: Yes (Hospitalization, Other)
  Sender: FDA-Public Use
  Company Number: PHBS2006JP19873

PATIENT
  Age: 27 Year
  Sex: Female

DRUGS (4)
  1. TEGRETOL [Suspect]
     Indication: TRIGEMINAL NEURALGIA
     Route: 065
     Dates: start: 20011001
  2. NEORAL [Suspect]
     Route: 065
     Dates: start: 20020301
  3. NIZATIDINE [Suspect]
     Dates: start: 20020301
  4. ADRENOCORTICOTROPHIC HORMONE [Concomitant]
     Dates: start: 20020301

REACTIONS (13)
  - ABORTION [None]
  - ALOPECIA [None]
  - BLISTER [None]
  - DEPILATION [None]
  - DRUG EXPOSURE DURING PREGNANCY [None]
  - DRUG HYPERSENSITIVITY [None]
  - DYSPNOEA [None]
  - ERYTHEMA [None]
  - HEPATITIS [None]
  - HUMAN HERPES VIRUS 6 SEROLOGY POSITIVE [None]
  - LYMPHADENOPATHY [None]
  - PYREXIA [None]
  - STOMATITIS [None]
